FAERS Safety Report 9283960 (Version 1)
Quarter: 2013Q2

REPORT INFORMATION
  Report Type: Spontaneous
  Country: NL (occurrence: NL)
  Receive Date: 20130510
  Receipt Date: 20130510
  Transmission Date: 20140414
  Serious: Yes (Hospitalization)
  Sender: FDA-Public Use
  Company Number: NL-ASTRAZENECA-2013SE31374

PATIENT
  Age: 23949 Day
  Sex: Male
  Weight: 69 kg

DRUGS (5)
  1. BRILIQUE [Suspect]
     Indication: PERCUTANEOUS CORONARY INTERVENTION
     Route: 048
     Dates: start: 20130410
  2. CLOPIDOGREL [Suspect]
     Route: 048
  3. SIMVASTATIN [Interacting]
     Indication: HYPERCHOLESTEROLAEMIA
     Route: 048
     Dates: start: 19950401, end: 20130420
  4. METOPROLOL [Concomitant]
     Route: 048
     Dates: start: 20130225
  5. ACETYLSALICYLZUUR [Concomitant]
     Route: 048
     Dates: start: 20130225, end: 20130422

REACTIONS (3)
  - Drug interaction [Unknown]
  - Myalgia [Recovering/Resolving]
  - Drug hypersensitivity [Unknown]
